FAERS Safety Report 11123876 (Version 3)
Quarter: 2015Q4

REPORT INFORMATION
  Report Type: Report from Study
  Country: UY (occurrence: UY)
  Receive Date: 20150520
  Receipt Date: 20151001
  Transmission Date: 20160304
  Serious: Yes (Hospitalization, Other)
  Sender: FDA-Public Use
  Company Number: UY-ROCHE-1565892

PATIENT
  Sex: Female

DRUGS (3)
  1. XELODA [Suspect]
     Active Substance: CAPECITABINE
     Indication: BREAST CANCER METASTATIC
     Dosage: DAILY
     Route: 048
     Dates: start: 20150325
  2. XELODA [Suspect]
     Active Substance: CAPECITABINE
     Dosage: TWICE DAILY FOR 1 WEEK.?DOSE MODIFIED.
     Route: 048
  3. DOCETAXEL. [Suspect]
     Active Substance: DOCETAXEL
     Indication: BREAST CANCER METASTATIC
     Route: 065

REACTIONS (17)
  - Off label use [Unknown]
  - Pyrexia [Recovered/Resolved]
  - Sleep disorder [Unknown]
  - Diarrhoea [Unknown]
  - Dizziness [Unknown]
  - Fatigue [Not Recovered/Not Resolved]
  - Palmar-plantar erythrodysaesthesia syndrome [Not Recovered/Not Resolved]
  - Somnolence [Unknown]
  - Nausea [Not Recovered/Not Resolved]
  - Abdominal pain [Unknown]
  - Pain [Unknown]
  - Photophobia [Unknown]
  - Vomiting [Unknown]
  - Neutropenia [Unknown]
  - Anxiety [Unknown]
  - Syncope [Unknown]
  - Immunosuppression [Unknown]
